FAERS Safety Report 15632468 (Version 1)
Quarter: 2018Q4

REPORT INFORMATION
  Report Type: Spontaneous
  Country: US (occurrence: US)
  Receive Date: 20181119
  Receipt Date: 20181119
  Transmission Date: 20190205
  Serious: Yes (Other)
  Sender: FDA-Public Use
  Company Number: US-GLAXOSMITHKLINE-US2018206348

PATIENT
  Sex: Female

DRUGS (1)
  1. PARODONTAX [Suspect]
     Active Substance: STANNOUS FLUORIDE
     Indication: PRODUCT USED FOR UNKNOWN INDICATION
     Dosage: UNK
     Route: 004

REACTIONS (3)
  - Insomnia [Recovering/Resolving]
  - Choking [Recovering/Resolving]
  - Cough [Recovering/Resolving]
